FAERS Safety Report 8447985-4 (Version None)
Quarter: 2012Q2

REPORT INFORMATION
  Report Type: 
  Country: None (occurrence: None)
  Receive Date: 20120619
  Receipt Date: 20120611
  Transmission Date: 20120825
  Serious: Yes (Other)
  Sender: FDA-Public Use
  Company Number: US-JNJFOC-20120521222

PATIENT
  Sex: Male

DRUGS (2)
  1. ZYTIGA [Suspect]
     Indication: NEOPLASM MALIGNANT
     Dosage: STRENGTH: 250 MG
     Route: 048
     Dates: start: 20120101
  2. PREDNISONE [Concomitant]
     Indication: PRODUCT USED FOR UNKNOWN INDICATION
     Route: 048

REACTIONS (6)
  - CONFUSIONAL STATE [None]
  - OEDEMA PERIPHERAL [None]
  - JOINT SWELLING [None]
  - SWELLING [None]
  - SECRETION DISCHARGE [None]
  - FLUID RETENTION [None]
